FAERS Safety Report 5864620-X (Version None)
Quarter: 2008Q3

REPORT INFORMATION
  Report Type: 
  Country: None (occurrence: None)
  Receive Date: 20080829
  Receipt Date: 20080711
  Transmission Date: 20090109
  Serious: No
  Sender: FDA-Public Use
  Company Number: US-ABBOTT-08P-163-0462242-00

PATIENT
  Sex: Male

DRUGS (3)
  1. SIMCOR [Suspect]
     Indication: BLOOD CHOLESTEROL INCREASED
     Dosage: 500/20MG DAILY
     Route: 048
     Dates: start: 20080702, end: 20080706
  2. NICOTINIC ACID [Concomitant]
     Indication: BLOOD CHOLESTEROL INCREASED
     Route: 048
     Dates: start: 20080601, end: 20080601
  3. NICOTINIC ACID [Concomitant]
     Route: 048
     Dates: start: 20080701

REACTIONS (1)
  - HAEMATOCHEZIA [None]
